FAERS Safety Report 18981291 (Version 1)
Quarter: 2021Q1

REPORT INFORMATION
  Report Type: Spontaneous
  Country: US (occurrence: US)
  Receive Date: 20210308
  Receipt Date: 20210308
  Transmission Date: 20210420
  Serious: No
  Sender: FDA-Public Use
  Company Number: None

PATIENT
  Age: 34 Year
  Sex: Female
  Weight: 56.93 kg

DRUGS (8)
  1. ALLEGRA [Concomitant]
     Active Substance: FEXOFENADINE HYDROCHLORIDE
  2. ARIPIPRAZOLE. [Suspect]
     Active Substance: ARIPIPRAZOLE
     Indication: MAJOR DEPRESSION
     Dosage: ?          QUANTITY:0.5 TABLET(S);?
     Route: 048
     Dates: start: 20210223, end: 20210307
  3. KLONOPIN [Concomitant]
     Active Substance: CLONAZEPAM
  4. VIIBRYD [Concomitant]
     Active Substance: VILAZODONE HYDROCHLORIDE
  5. MAG/CAL [Concomitant]
  6. WOMEN^S MULTIVITAMIN [Concomitant]
  7. ALGAE OMEGA [Concomitant]
  8. RED REISHI MUSHROOM [Concomitant]

REACTIONS (5)
  - Weight increased [None]
  - Constipation [None]
  - Binge eating [None]
  - Abdominal distension [None]
  - Gastrointestinal pain [None]

NARRATIVE: CASE EVENT DATE: 20210223
